FAERS Safety Report 24833262 (Version 1)
Quarter: 2025Q1

REPORT INFORMATION
  Report Type: Spontaneous
  Country: GB (occurrence: GB)
  Receive Date: 20250111
  Receipt Date: 20250111
  Transmission Date: 20250409
  Serious: Yes (Other)
  Sender: AUROBINDO
  Company Number: GB-AUROBINDO-AUR-APL-2025-001111

PATIENT
  Age: 12 Year
  Sex: Male
  Weight: 71.1 kg

DRUGS (1)
  1. HYDROCORTISONE [Suspect]
     Active Substance: HYDROCORTISONE
     Indication: Germ cell cancer
     Route: 065

REACTIONS (1)
  - Drug ineffective [Unknown]
